FAERS Safety Report 8551921-X (Version None)
Quarter: 2012Q3

REPORT INFORMATION
  Report Type: 
  Country: None (occurrence: None)
  Receive Date: 20120730
  Receipt Date: 20120719
  Transmission Date: 20120928
  Serious: Yes (Life-Threatening, Hospitalization)
  Sender: FDA-Public Use
  Company Number: FR-ASTRAZENECA-2012SE51239

PATIENT
  Sex: Male

DRUGS (4)
  1. PRAVASTATIN [Suspect]
     Route: 065
  2. ATENOLOL [Suspect]
     Route: 048
  3. RAMIPRIL [Suspect]
     Route: 048
  4. ASPIRIN [Suspect]
     Route: 065

REACTIONS (1)
  - ADVERSE EVENT [None]
